FAERS Safety Report 9144609 (Version 2)
Quarter: 2013Q1

REPORT INFORMATION
  Report Type: Spontaneous
  Country: ES (occurrence: US)
  Receive Date: 20130306
  Receipt Date: 20130307
  Transmission Date: 20140127
  Serious: Yes (Hospitalization, Other)
  Sender: FDA-Public Use
  Company Number: US-PFIZER INC-2013069349

PATIENT
  Age: 24 Year
  Sex: Male

DRUGS (2)
  1. PHENYTOIN [Suspect]
     Dosage: 18 TABLETS
  2. PHENOBARBITAL SODIUM [Suspect]
     Dosage: 12 TABLETS

REACTIONS (10)
  - Suicide attempt [Unknown]
  - Toxicity to various agents [Unknown]
  - Ophthalmoplegia [Recovered/Resolved]
  - Disorientation [Recovered/Resolved]
  - Confusional state [Unknown]
  - Ataxia [Recovering/Resolving]
  - Dysarthria [Unknown]
  - Hyperreflexia [Unknown]
  - Nystagmus [Recovered/Resolved]
  - Somnolence [Recovered/Resolved]
